FAERS Safety Report 8601602-9 (Version None)
Quarter: 2012Q3

REPORT INFORMATION
  Report Type: 
  Country: None (occurrence: None)
  Receive Date: 20120817
  Receipt Date: 20111229
  Transmission Date: 20120928
  Serious: Yes (Other)
  Sender: FDA-Public Use
  Company Number: US-BRISTOL-MYERS SQUIBB COMPANY-16297723

PATIENT
  Age: 23 Year
  Sex: Male

DRUGS (2)
  1. SPRYCEL [Suspect]
     Dosage: INCREASED TO 140 MG
  2. METHOTREXATE [Concomitant]
     Route: 048

REACTIONS (5)
  - PNEUMONIA BACTERIAL [None]
  - PYREXIA [None]
  - NEOPLASM MALIGNANT [None]
  - PLEURAL EFFUSION [None]
  - PANCYTOPENIA [None]
